FAERS Safety Report 19394874 (Version 1)
Quarter: 2021Q2

REPORT INFORMATION
  Report Type: Spontaneous
  Country: JP (occurrence: JP)
  Receive Date: 20210609
  Receipt Date: 20210609
  Transmission Date: 20210717
  Serious: Yes (Other)
  Sender: FDA-Public Use
  Company Number: JP-UCBSA-2021028044

PATIENT
  Age: 74 Year
  Sex: Female
  Weight: 41 kg

DRUGS (2)
  1. E KEPPRA [Suspect]
     Active Substance: LEVETIRACETAM
     Dosage: 2000 MILLIGRAM, DAILY
     Route: 041
     Dates: start: 20201117, end: 20201124
  2. E KEPPRA [Suspect]
     Active Substance: LEVETIRACETAM
     Indication: PARTIAL SEIZURES WITH SECONDARY GENERALISATION
     Dosage: 1000 MILLIGRAM, DAILY
     Route: 041
     Dates: start: 20201112

REACTIONS (1)
  - Pneumonia aspiration [Recovered/Resolved]

NARRATIVE: CASE EVENT DATE: 20201113
